FAERS Safety Report 4853227-9 (Version None)
Quarter: 2005Q4

REPORT INFORMATION
  Report Type: 
  Country: None (occurrence: None)
  Receive Date: 20051213
  Receipt Date: 20051213
  Transmission Date: 20060501
  Serious: Yes (Other)
  Sender: FDA-Public Use
  Company Number: None

PATIENT
  Age: 79 Year
  Sex: Male
  Weight: 74.6 kg

DRUGS (1)
  1. HEPARIN [Suspect]
     Indication: HAEMODIALYSIS
     Dosage: 4000UNITS BOLUS /HOURLY IV
     Route: 042
     Dates: start: 20051206

REACTIONS (3)
  - ACTIVATED PARTIAL THROMBOPLASTIN TIME ABNORMAL [None]
  - DRUG LEVEL INCREASED [None]
  - POST PROCEDURAL HAEMORRHAGE [None]
